FAERS Safety Report 6196480-4 (Version None)
Quarter: 2009Q2

REPORT INFORMATION
  Report Type: 
  Country: None (occurrence: None)
  Receive Date: 20090513
  Receipt Date: 20090513
  Transmission Date: 20091009
  Serious: Yes (Hospitalization)
  Sender: FDA-Public Use
  Company Number: None

PATIENT
  Sex: Male
  Weight: 90 kg

DRUGS (3)
  1. ISOKET RETARD (ISOKET RETARD) [Suspect]
     Dosage: (15 DF, 15 TABLETS OVER SEVERAL HOURS ORAL)
     Route: 048
  2. BISOPROLOL FUMARATE [Suspect]
     Dosage: (10 DF, 10 TABLETS OVER SEVERAL HOURS ORAL)
     Route: 048
  3. METFORMIN HCL [Suspect]
     Dosage: (12 DF, 12 TABLERTS OVER SEVERAL HOURS ORAL)

REACTIONS (3)
  - HYPOTENSION [None]
  - INTENTIONAL DRUG MISUSE [None]
  - SUICIDE ATTEMPT [None]
